FAERS Safety Report 9425155 (Version 1)
Quarter: 2013Q3

REPORT INFORMATION
  Report Type: Spontaneous
  Country: IT (occurrence: IT)
  Receive Date: 20130729
  Receipt Date: 20130729
  Transmission Date: 20140515
  Serious: Yes (Other)
  Sender: FDA-Public Use
  Company Number: IT-TEVA-421931ISR

PATIENT
  Age: 9 Month
  Sex: Female

DRUGS (5)
  1. CISPLATIN [Suspect]
     Indication: GLIOMA
     Dosage: 100 MG/M2 DAILY; CUMULATIVE DOSE: 1200 MG/M2
     Route: 065
  2. CARBOPLATIN [Suspect]
     Indication: GLIOMA
     Dosage: 4950 MG/M2 DAILY; DOSE CUMULATIVE
     Route: 065
  3. ETOPOSIDE [Concomitant]
     Dosage: 300 MG/M2 DAILY; 12 CYCLES
  4. VINBLASTINE [Concomitant]
     Dosage: 6 MG/M2 DAILY; 20 DOSES
  5. TEMOZOLOMIDE [Concomitant]
     Dosage: 20 MG/M2 DAILY;

REACTIONS (3)
  - Hypersensitivity [Unknown]
  - Hypoacusis [Unknown]
  - Bone marrow toxicity [Unknown]
